FAERS Safety Report 10450478 (Version 1)
Quarter: 2014Q3

REPORT INFORMATION
  Report Type: Spontaneous
  Country: US (occurrence: None)
  Receive Date: 20140910
  Receipt Date: 20140910
  Transmission Date: 20150326
  Serious: No
  Sender: FDA-Public Use
  Company Number: 13079ADE

PATIENT
  Age: 71 Year
  Sex: Male

DRUGS (5)
  1. FLOMAX /01280302/ (TAMSULOSIN HYDROCHLORIDE) [Concomitant]
  2. POTASSIUM CITRATE. [Suspect]
     Active Substance: POTASSIUM CITRATE
     Indication: NEPHROLITHIASIS
     Dosage: 2 TAB PO TID
     Route: 048
  3. METFORMIN [Concomitant]
     Active Substance: METFORMIN HYDROCHLORIDE
  4. HYDROCHLOROTHIAZIDE. [Concomitant]
     Active Substance: HYDROCHLOROTHIAZIDE
  5. AVODART (DUTASTERIDE) [Concomitant]

REACTIONS (4)
  - Dysphagia [None]
  - Wrong technique in drug usage process [None]
  - Retching [None]
  - Vomiting [None]

NARRATIVE: CASE EVENT DATE: 2013
